FAERS Safety Report 4621490-5 (Version None)
Quarter: 2005Q1

REPORT INFORMATION
  Report Type: 
  Country: None (occurrence: None)
  Receive Date: 20050328
  Receipt Date: 20031125
  Transmission Date: 20050727
  Serious: No
  Sender: FDA-Public Use
  Company Number: 10040

PATIENT
  Age: 60 Year
  Sex: Female

DRUGS (2)
  1. METHOTREXATE [Suspect]
     Dates: start: 20020701
  2. SULFASALAZINE [Concomitant]

REACTIONS (1)
  - AMOEBIC COLITIS [None]
